FAERS Safety Report 7637006-5 (Version None)
Quarter: 2011Q3

REPORT INFORMATION
  Report Type: 
  Country: None (occurrence: None)
  Receive Date: 20110726
  Receipt Date: 20110718
  Transmission Date: 20111222
  Serious: Yes (Other)
  Sender: FDA-Public Use
  Company Number: US-PFIZER INC-2005124459

PATIENT
  Sex: Female
  Weight: 63 kg

DRUGS (10)
  1. PROVERA [Suspect]
     Dosage: 2.5 MG, TOOK 1-21 DAYS
     Dates: start: 19941001
  2. PREMARIN [Suspect]
     Dosage: 0.3 AND 0.625 ALTERNATE DAYS, TOOK 1-21 DAYS
     Dates: start: 19941001
  3. PREMARIN [Suspect]
     Dosage: 0.3 MG, TOOK 1-21 DAYS
     Dates: start: 19950301
  4. PREMARIN [Suspect]
     Dosage: 0.3 MG, ALTERNATE DAYS, TOOK 1-30 DAYS
     Dates: start: 20030101, end: 20031231
  5. PROVERA [Suspect]
     Dosage: 2.5 MG, TOOK ALTERNATE DAYS, FROM 1-30 DAYS OF THE MONTH
     Dates: start: 20030101, end: 20031231
  6. SYNTHROID [Concomitant]
     Indication: THYROID DISORDER
     Dosage: 0.15 AND 0.17 ALTERNATING DAYS
     Dates: start: 19700101
  7. MEDROXYPROGESTERONE ACETATE [Suspect]
     Indication: HORMONE REPLACEMENT THERAPY
     Route: 048
  8. PROVERA [Suspect]
     Indication: HORMONE REPLACEMENT THERAPY
     Dosage: 5 MG, TOOK 1-21 DAYS OF EACH MONTH
     Route: 048
     Dates: start: 19940101
  9. PROVERA [Suspect]
     Dosage: 2.5 MG, TOOK 1-21 DAYS
     Dates: start: 19950301
  10. PREMARIN [Suspect]
     Indication: HORMONE REPLACEMENT THERAPY
     Dosage: 0.625 MG, TOOK 1-21 DAYS EACH MONTH
     Route: 048
     Dates: start: 19940101

REACTIONS (1)
  - BREAST CANCER FEMALE [None]
